FAERS Safety Report 15567578 (Version 1)
Quarter: 2018Q4

REPORT INFORMATION
  Report Type: Other
  Country: US (occurrence: US)
  Receive Date: 20181030
  Receipt Date: 20181030
  Transmission Date: 20190205
  Serious: Yes (Hospitalization)
  Sender: FDA-Public Use
  Company Number: US-INTERCEPT-PMOCA2018001690

PATIENT

DRUGS (14)
  1. FUROSEMIDE. [Concomitant]
     Active Substance: FUROSEMIDE
  2. LACTULOSE. [Concomitant]
     Active Substance: LACTULOSE
  3. PROPANOLOL [Concomitant]
     Active Substance: PROPRANOLOL HYDROCHLORIDE
  4. XIFAXAN [Concomitant]
     Active Substance: RIFAXIMIN
  5. NYSTOP [Concomitant]
     Active Substance: NYSTATIN
  6. MUPIROCIN. [Concomitant]
     Active Substance: MUPIROCIN
  7. OCALIVA [Suspect]
     Active Substance: OBETICHOLIC ACID
     Indication: PRIMARY BILIARY CHOLANGITIS
     Dosage: 5 MG, QD
     Route: 048
     Dates: start: 20180505, end: 2018
  8. URSODIOL. [Concomitant]
     Active Substance: URSODIOL
  9. ERYTHROMYCIN. [Concomitant]
     Active Substance: ERYTHROMYCIN
  10. LEVOTHYROXIN [Concomitant]
     Active Substance: LEVOTHYROXINE
  11. OMEPRAZOLE. [Concomitant]
     Active Substance: OMEPRAZOLE
  12. CYPROHEPTADIN [Concomitant]
  13. POTASSIUM CHLORIDE. [Concomitant]
     Active Substance: POTASSIUM CHLORIDE
  14. SPIRONOLACTONE. [Concomitant]
     Active Substance: SPIRONOLACTONE

REACTIONS (2)
  - Hospitalisation [Unknown]
  - Ammonia increased [Unknown]

NARRATIVE: CASE EVENT DATE: 2018
